FAERS Safety Report 25964730 (Version 1)
Quarter: 2025Q4

REPORT INFORMATION
  Report Type: Report from Study
  Country: US (occurrence: US)
  Receive Date: 20251027
  Receipt Date: 20251027
  Transmission Date: 20260118
  Serious: Yes (Other)
  Sender: ABBVIE
  Company Number: US-ABBVIE-6009319

PATIENT
  Sex: Female

DRUGS (1)
  1. HUMIRA [Suspect]
     Active Substance: ADALIMUMAB
     Indication: Crohn^s disease
     Dosage: DOSAGE: 40 MG/ML CITRATE FREE
     Route: 058

REACTIONS (4)
  - Skin necrosis [Unknown]
  - Anisometropia [Unknown]
  - Cataract [Unknown]
  - Brain fog [Unknown]
